FAERS Safety Report 9034781 (Version 1)
Quarter: 2013Q1

REPORT INFORMATION
  Report Type: Spontaneous
  Country: DE (occurrence: None)
  Receive Date: 20130118
  Receipt Date: 20130118
  Transmission Date: 20140127
  Serious: Yes (Death, Other)
  Sender: FDA-Public Use
  Company Number: 2013P1000478

PATIENT
  Age: 55 Year
  Sex: Male

DRUGS (1)
  1. HEPARIN [Suspect]

REACTIONS (2)
  - Heparin-induced thrombocytopenia [None]
  - Thrombosis in device [None]
